FAERS Safety Report 9122566 (Version 1)
Quarter: 2013Q1

REPORT INFORMATION
  Report Type: Spontaneous
  Country: US (occurrence: None)
  Receive Date: 20130130
  Receipt Date: 20130130
  Transmission Date: 20140127
  Serious: Yes (Death)
  Sender: FDA-Public Use
  Company Number: B0859529A

PATIENT
  Age: 56 Year
  Sex: Female

DRUGS (11)
  1. SUMATRIPTAN SUCCINATE (FORMULATION UNKNOWN) (GENERIC) (SUMATRIPTAN SUCCINATE) [Suspect]
     Route: 048
  2. CLONAZEPAM (FORMULATION UNKNOWN) (GENERIC) (CLONAZEPINE) [Suspect]
     Route: 048
  3. TRICYCLIC ANTIDEPRESSANT (FORMULATION UNKNOWN) (TRICYCLIC ANTIDEPRESSANT) [Suspect]
     Route: 048
  4. LISINOPRIL (FORMULATION UNKNOWN) (LISINOPRIL) [Suspect]
     Route: 048
  5. CITALOPRAM (FORMULATION UNKNOWN) (CITALOPRAM) [Suspect]
     Route: 048
  6. GABAPENTIN (FORMULATION UNKNOWN) (GABAPENTIN) [Suspect]
     Route: 048
  7. CYCLOBENZAPRINE HCL (FORMULATION UNKNOWN) (CYCLOBENZAPRINE HCL ) [Suspect]
     Route: 048
  8. BUTALBITAL+CAFFEINE+PARA (FORMULATION UNKNOWN) (BUTALBITAL+CAFFEINE+PARA) [Suspect]
     Route: 048
  9. UNSPECIFIED INGREDIENT [Suspect]
     Route: 048
  10. NAPROXEN (FORMULATION UNKNOWN) (NAPROXEN) [Suspect]
     Route: 048
  11. ZOLPIDEM (FORMULATION UNKNOLWN) (ZOLPIDEM) [Suspect]
     Route: 048

REACTIONS (1)
  - Completed suicide [None]
